FAERS Safety Report 10387744 (Version 7)
Quarter: 2015Q1

REPORT INFORMATION
  Report Type: Report from Study
  Country: FR (occurrence: None)
  Receive Date: 20140813
  Receipt Date: 20150126
  Transmission Date: 20150720
  Serious: Yes (Hospitalization, Other)
  Sender: FDA-Public Use
  Company Number: 2014-FR-008312

PATIENT
  Age: 42 Year
  Sex: Male
  Weight: 80 kg

DRUGS (4)
  1. INEXIUM (ESOMEPRAZOLE MAGNESIUM) [Concomitant]
     Active Substance: ESOMEPRAZOLE MAGNESIUM
  2. XYREM [Suspect]
     Active Substance: SODIUM OXYBATE
     Indication: CATAPLEXY
     Route: 048
     Dates: start: 20140505, end: 2014
  3. XYREM [Suspect]
     Active Substance: SODIUM OXYBATE
     Indication: NARCOLEPSY
     Route: 048
     Dates: start: 20140505, end: 2014
  4. MODIODAL (MODAFINIL) [Concomitant]

REACTIONS (12)
  - Vomiting [None]
  - Dyskinesia [None]
  - Fall [None]
  - Tendon rupture [None]
  - Visual impairment [None]
  - Vertigo [None]
  - Paraesthesia [None]
  - Fatigue [None]
  - Snoring [None]
  - Palpitations [None]
  - Emergency care [None]
  - Pain in extremity [None]

NARRATIVE: CASE EVENT DATE: 201405
